FAERS Safety Report 8802922 (Version 1)
Quarter: 2012Q4

REPORT INFORMATION
  Report Type: 
  Country: BR (occurrence: BR)
  Receive Date: 20120924
  Receipt Date: 20120924
  Transmission Date: 20130627
  Serious: Yes (Other)
  Sender: FDA-Public Use
  Company Number: BR-PFIZER INC-2012228196

PATIENT
  Age: 53 Year
  Sex: Female

DRUGS (1)
  1. XALATAN [Suspect]
     Indication: GLAUCOMA
     Dosage: two drops (3 ug) once a day
     Dates: start: 20101123, end: 2012

REACTIONS (2)
  - Intraocular pressure increased [Not Recovered/Not Resolved]
  - Off label use [Unknown]
